FAERS Safety Report 9741497 (Version 1)
Quarter: 2013Q4

REPORT INFORMATION
  Report Type: Spontaneous
  Country: IT (occurrence: IT)
  Receive Date: 20131209
  Receipt Date: 20131209
  Transmission Date: 20140711
  Serious: Yes (Other)
  Sender: FDA-Public Use
  Company Number: IT-MYLANLABS-2013S1026953

PATIENT
  Age: 71 Year
  Sex: Male

DRUGS (7)
  1. AMIODARONE HYDROCHLORIDE [Suspect]
     Indication: ATRIAL FIBRILLATION
     Route: 048
     Dates: start: 20131111, end: 20131112
  2. RYTMONORM [Interacting]
     Indication: ATRIAL FIBRILLATION
     Route: 048
     Dates: start: 20120101, end: 20131112
  3. COUMADIN [Concomitant]
     Indication: ATRIAL FIBRILLATION
     Dates: start: 20120101, end: 20131112
  4. OLMETEC [Concomitant]
     Indication: HYPERTENSION
     Dates: start: 20120101, end: 20131112
  5. PROVISACOR [Concomitant]
     Indication: HYPERLIPIDAEMIA
     Dates: start: 20120101, end: 20131112
  6. CONGESCOR [Concomitant]
     Indication: HYPERTENSION
     Dates: start: 20120101, end: 20131112
  7. PERINDOPRIL [Concomitant]
     Indication: HYPERTENSION
     Dates: start: 20120101, end: 20131112

REACTIONS (2)
  - Bradycardia [Recovered/Resolved]
  - Drug interaction [Recovered/Resolved]
